FAERS Safety Report 5370466-1 (Version None)
Quarter: 2007Q2

REPORT INFORMATION
  Report Type: 
  Country: None (occurrence: None)
  Receive Date: 20070626
  Receipt Date: 20070312
  Transmission Date: 20071010
  Serious: No
  Sender: FDA-Public Use
  Company Number: US-AMGEN-US214670

PATIENT
  Sex: Female
  Weight: 81.3 kg

DRUGS (2)
  1. ARANESP [Suspect]
     Indication: RENAL FAILURE CHRONIC
     Route: 065
     Dates: start: 20070227
  2. LASIX [Concomitant]

REACTIONS (7)
  - ARTHRALGIA [None]
  - BRONCHITIS [None]
  - COUGH [None]
  - DYSPNOEA [None]
  - FATIGUE [None]
  - JOINT SWELLING [None]
  - PAIN IN EXTREMITY [None]
